FAERS Safety Report 8475001-7 (Version None)
Quarter: 2012Q2

REPORT INFORMATION
  Report Type: 
  Country: None (occurrence: None)
  Receive Date: 20120628
  Receipt Date: 20120619
  Transmission Date: 20120825
  Serious: Yes (Hospitalization, Other)
  Sender: FDA-Public Use
  Company Number: US-BAYER-2012-042687

PATIENT
  Age: 28 Year
  Sex: Female
  Weight: 129.25 kg

DRUGS (32)
  1. GEODON [Concomitant]
     Indication: PSYCHOTIC DISORDER
     Dosage: 80 MG, BID
     Dates: start: 20070101
  2. LYRICA [Concomitant]
     Indication: PAIN
  3. BACLOFEN [Concomitant]
     Indication: COMPLEX REGIONAL PAIN SYNDROME
     Dosage: 10 MG, 1 X
     Dates: start: 20080101
  4. BENZONATATE [Concomitant]
     Indication: ASTHMA
     Dosage: 1 PILL QD
  5. BUPROPION HCL [Concomitant]
     Indication: DEPRESSION
     Dosage: UNK
     Dates: start: 20070101
  6. LIDODERM [Concomitant]
     Indication: PAIN
  7. ZOFRAN [Concomitant]
     Indication: COMPLEX REGIONAL PAIN SYNDROME
     Dosage: UNK UNK, PRN
  8. CROMOLYN SODIUM [Concomitant]
     Indication: ASTHMA
     Dosage: 20 MG/2, NEBULIZER
  9. FLUTICASONE PROPIONATE [Concomitant]
     Indication: ASTHMA
     Dosage: 1 PILL QD
     Dates: start: 20090101
  10. XANAX [Concomitant]
     Indication: ANXIETY
     Dosage: UNK UNK, PRN
     Dates: start: 20070101
  11. MORPHINE [Concomitant]
     Indication: COMPLEX REGIONAL PAIN SYNDROME
     Dosage: UNK, PRN
  12. YAZ [Suspect]
     Indication: AMENORRHOEA
     Dosage: UNK
     Dates: start: 20090828, end: 20100405
  13. LEXAPRO [Concomitant]
     Indication: ANXIETY
  14. RANITIDINE [Concomitant]
     Indication: GASTROOESOPHAGEAL REFLUX DISEASE
     Dosage: 1 PILL QD
     Dates: start: 20070101
  15. BACLOFEN [Concomitant]
     Indication: PAIN
  16. LIDODERM [Concomitant]
     Indication: COMPLEX REGIONAL PAIN SYNDROME
     Dosage: 5 %, BID
     Dates: start: 20080101
  17. XOPENEX [Concomitant]
     Indication: ASTHMA
     Dosage: 1 PILL QD
  18. PILOCARPINE [Concomitant]
     Indication: DRY MOUTH
     Dosage: 1 PILL, BID
  19. OMEPRAZOLE [Concomitant]
     Indication: GASTROOESOPHAGEAL REFLUX DISEASE
     Dosage: 1 PILL QD
  20. ZOFRAN [Concomitant]
     Indication: PAIN
  21. FLUCONAZOLE [Concomitant]
     Indication: FUNGAL SKIN INFECTION
     Dosage: 200 MG, QD
  22. MORPHINE [Concomitant]
     Indication: PAIN
  23. FEMCON FE [Concomitant]
     Indication: AMENORRHOEA
     Dosage: 1 PILL QD
  24. PROPOXYPHENE NAPSYLATE W/ ACETAMINOPHEN [Concomitant]
     Indication: COMPLEX REGIONAL PAIN SYNDROME
     Dosage: +#8220;100-650 T+#8221;
  25. IPRATROPIUM BROMIDE [Concomitant]
     Indication: ASTHMA
     Dosage: 0.5/3MG
  26. LYRICA [Concomitant]
     Indication: COMPLEX REGIONAL PAIN SYNDROME
     Dosage: 100 MG, TID
     Dates: start: 20080101
  27. MIRALAX [Concomitant]
     Indication: CONSTIPATION
     Dosage: UNK UNK, PRN
  28. SINGULAIR [Concomitant]
     Indication: ASTHMA
     Dosage: 40 MG, QD
     Dates: start: 20070101
  29. LEXAPRO [Concomitant]
     Indication: DEPRESSION
     Dosage: 1 PILL QD
     Dates: start: 20070101
  30. PROPOXYPHENE NAPSYLATE W/ ACETAMINOPHEN [Concomitant]
     Indication: PAIN
  31. SYMBICORT [Concomitant]
     Dosage: 160/4.5 MG, 2 PUFF(S), BID
     Route: 045
  32. ALBUTEROL [Concomitant]
     Dosage: UNK UNK, PRN

REACTIONS (15)
  - PROCEDURAL SITE REACTION [None]
  - THROMBOPHLEBITIS SUPERFICIAL [None]
  - CARDIAC DISORDER [None]
  - PULMONARY EMBOLISM [None]
  - NAUSEA [None]
  - DEEP VEIN THROMBOSIS [None]
  - PULMONARY HYPERTENSION [None]
  - CHEST PAIN [None]
  - EPISTAXIS [None]
  - INJURY [None]
  - PAIN [None]
  - DYSPNOEA [None]
  - ABDOMINAL PAIN [None]
  - PAIN IN EXTREMITY [None]
  - OEDEMA PERIPHERAL [None]
